FAERS Safety Report 7825646-X (Version None)
Quarter: 2011Q4

REPORT INFORMATION
  Report Type: 
  Country: None (occurrence: None)
  Receive Date: 20111019
  Receipt Date: 20111011
  Transmission Date: 20120403
  Serious: Yes (Other)
  Sender: FDA-Public Use
  Company Number: CHPA2011US14022

PATIENT
  Age: 72 Year
  Sex: Male

DRUGS (3)
  1. PREVACID 24 HR [Suspect]
     Indication: DYSPEPSIA
  2. PREVACID 24 HR [Suspect]
     Indication: GASTROOESOPHAGEAL REFLUX DISEASE
     Dosage: 15 MG, QD
     Route: 048
     Dates: start: 20090101
  3. ASPIRIN [Concomitant]
     Route: 048

REACTIONS (3)
  - INCORRECT DRUG ADMINISTRATION DURATION [None]
  - CARDIAC OPERATION [None]
  - OFF LABEL USE [None]
